FAERS Safety Report 21283478 (Version 1)
Quarter: 2022Q3

REPORT INFORMATION
  Report Type: Spontaneous
  Country: US (occurrence: US)
  Receive Date: 20220901
  Receipt Date: 20220901
  Transmission Date: 20221027
  Serious: Yes (Hospitalization)
  Sender: FDA-Public Use
  Company Number: US-LUNDBECK-DKLU3052013

PATIENT
  Age: 10 Year
  Sex: Female

DRUGS (1)
  1. SABRIL [Suspect]
     Active Substance: VIGABATRIN
     Indication: Congenital anomaly
     Route: 048
     Dates: start: 20160421

REACTIONS (2)
  - General physical health deterioration [Not Recovered/Not Resolved]
  - Off label use [Unknown]
